FAERS Safety Report 9918650 (Version 2)
Quarter: 2014Q1

REPORT INFORMATION
  Report Type: Spontaneous
  Country: AT (occurrence: AT)
  Receive Date: 20140224
  Receipt Date: 20140325
  Transmission Date: 20141002
  Serious: Yes (Other)
  Sender: FDA-Public Use
  Company Number: AT-BRISTOL-MYERS SQUIBB COMPANY-20209623

PATIENT
  Sex: Female

DRUGS (1)
  1. LITALIR [Suspect]
     Indication: POLYCYTHAEMIA VERA

REACTIONS (2)
  - Breast cancer [Unknown]
  - Off label use [Unknown]
